FAERS Safety Report 14369351 (Version 1)
Quarter: 2018Q1

REPORT INFORMATION
  Report Type: Spontaneous
  Country: CN (occurrence: CN)
  Receive Date: 20180109
  Receipt Date: 20180109
  Transmission Date: 20180509
  Serious: Yes (Hospitalization)
  Sender: FDA-Public Use
  Company Number: CN-BAXTER-2018BAX000443

PATIENT
  Age: 43 Year
  Sex: Female
  Weight: 56 kg

DRUGS (4)
  1. NAVELBINE [Suspect]
     Active Substance: VINORELBINE TARTRATE
     Indication: NEOPLASM
     Route: 041
     Dates: start: 20170619, end: 20170619
  2. CISPLATIN INJECTION [Suspect]
     Active Substance: CISPLATIN
     Indication: NEOPLASM
     Route: 041
     Dates: start: 20170619, end: 20170619
  3. 0.9% SODIUM CHLORIDE INJECTION [Suspect]
     Active Substance: SODIUM CHLORIDE
     Indication: MEDICATION DILUTION
     Dosage: SOLVENT OF NAVELBINE
     Route: 041
     Dates: start: 20170619, end: 20170619
  4. 0.9% SODIUM CHLORIDE INJECTION [Suspect]
     Active Substance: SODIUM CHLORIDE
     Dosage: SOLVENT OF CIS-PLATINUM
     Route: 041
     Dates: start: 20170619, end: 20170619

REACTIONS (1)
  - Bone marrow failure [Recovering/Resolving]

NARRATIVE: CASE EVENT DATE: 20170626
